FAERS Safety Report 4960730-X (Version None)
Quarter: 2006Q2

REPORT INFORMATION
  Report Type: 
  Country: None (occurrence: None)
  Receive Date: 20060403
  Receipt Date: 19970127
  Transmission Date: 20061013
  Serious: Yes (Life-Threatening, Hospitalization, Disabling)
  Sender: FDA-Public Use
  Company Number: 1997AP31333

PATIENT
  Age: 10 Month
  Sex: Male
  Weight: 9 kg

DRUGS (9)
  1. DIPRIVAN [Suspect]
     Indication: SEDATION
     Dosage: 10      MG/KG/HR
     Route: 042
     Dates: start: 19970118, end: 19970120
  2. DIPRIVAN [Suspect]
  3. DIPRIVAN [Suspect]
     Route: 042
  4. MORPHINE [Concomitant]
     Dates: start: 19970116, end: 19970118
  5. MIDAZOLAM HCL [Concomitant]
     Dates: start: 19970116, end: 19970118
  6. CEFOTAXIME [Concomitant]
     Indication: UPPER RESPIRATORY TRACT INFECTION
     Route: 042
     Dates: start: 19970115, end: 19970121
  7. CLOXACILLIN SODIUM [Concomitant]
     Indication: UPPER RESPIRATORY TRACT INFECTION
     Route: 042
     Dates: start: 19970117, end: 19970121
  8. RANITIDINE [Concomitant]
     Indication: PROPHYLAXIS
     Route: 042
     Dates: start: 19970118, end: 19970121
  9. DEXAMETHASONE TAB [Concomitant]
     Route: 042
     Dates: start: 19970120, end: 19970121

REACTIONS (17)
  - ARRHYTHMIA [None]
  - ATRIOVENTRICULAR BLOCK [None]
  - BLINDNESS CORTICAL [None]
  - BLOOD PRESSURE ABNORMAL [None]
  - BLOOD TRIGLYCERIDES INCREASED [None]
  - BRADYCARDIA [None]
  - CHROMATURIA [None]
  - HAEMODIALYSIS [None]
  - HEPATIC NECROSIS [None]
  - HEPATOMEGALY [None]
  - LACTIC ACIDOSIS [None]
  - LOSS OF CONSCIOUSNESS [None]
  - MUSCLE NECROSIS [None]
  - NEUROLOGICAL SYMPTOM [None]
  - PROPOFOL INFUSION SYNDROME [None]
  - PYREXIA [None]
  - TACHYPNOEA [None]
